FAERS Safety Report 8141257-3 (Version None)
Quarter: 2012Q1

REPORT INFORMATION
  Report Type: 
  Country: None (occurrence: None)
  Receive Date: 20120103
  Receipt Date: 20110919
  Transmission Date: 20120608
  Serious: No
  Sender: FDA-Public Use
  Company Number: AE-2011-001657

PATIENT
  Age: 51 Year

DRUGS (4)
  1. RIBAVIRIN [Concomitant]
  2. INCIVEK [Suspect]
     Dosage: 2571.4286 MG (750 MG, 1 IN 7 HR), ORAL
     Route: 048
     Dates: start: 20110730
  3. PEGASYS [Concomitant]
  4. URSODIOL [Concomitant]

REACTIONS (6)
  - RASH [None]
  - ANORECTAL DISCOMFORT [None]
  - ANAEMIA [None]
  - NAUSEA [None]
  - EXERCISE TOLERANCE DECREASED [None]
  - PRURITUS GENERALISED [None]
